FAERS Safety Report 16458645 (Version 1)
Quarter: 2019Q2

REPORT INFORMATION
  Report Type: Spontaneous
  Country: US (occurrence: US)
  Receive Date: 20190620
  Receipt Date: 20190620
  Transmission Date: 20190711
  Serious: No
  Sender: FDA-Public Use
  Company Number: US-THERAPEUTICSMD-2019TMD00586

PATIENT
  Age: 59 Year
  Sex: Female
  Weight: 65.76 kg

DRUGS (5)
  1. PROLIA [Concomitant]
     Active Substance: DENOSUMAB
  2. SIMVASTATIN. [Concomitant]
     Active Substance: SIMVASTATIN
  3. IMVEXXY [Suspect]
     Active Substance: ESTRADIOL
     Indication: VULVOVAGINAL DRYNESS
     Dosage: 10 ?G, 1X/DAY BEFORE BED
     Route: 067
     Dates: start: 20190327, end: 20190331
  4. IMVEXXY [Suspect]
     Active Substance: ESTRADIOL
     Indication: ATROPHIC VULVOVAGINITIS
  5. RESCUE INHALER [Concomitant]

REACTIONS (1)
  - Breast tenderness [Recovering/Resolving]

NARRATIVE: CASE EVENT DATE: 201903
